FAERS Safety Report 20776772 (Version 1)
Quarter: 2022Q2

REPORT INFORMATION
  Report Type: Spontaneous
  Country: US (occurrence: US)
  Receive Date: 20220502
  Receipt Date: 20220502
  Transmission Date: 20220721
  Serious: No
  Sender: FDA-Public Use
  Company Number: US-PFIZER INC-2015272843

PATIENT
  Age: 62 Year
  Sex: Female

DRUGS (4)
  1. LYRICA [Suspect]
     Active Substance: PREGABALIN
     Indication: Fibromyalgia
     Dosage: 75 MG, 2X/DAY
     Route: 048
     Dates: start: 20150806
  2. LYRICA [Suspect]
     Active Substance: PREGABALIN
     Indication: Intervertebral disc protrusion
  3. SKELAXIN [Suspect]
     Active Substance: METAXALONE
     Indication: Fibromyalgia
     Dosage: 800 MG, UNK
  4. SKELAXIN [Suspect]
     Active Substance: METAXALONE
     Indication: Intervertebral disc protrusion

REACTIONS (1)
  - Speech disorder [Unknown]
